FAERS Safety Report 19180031 (Version 1)
Quarter: 2021Q2

REPORT INFORMATION
  Report Type: Spontaneous
  Country: US (occurrence: US)
  Receive Date: 20210423
  Receipt Date: 20210423
  Transmission Date: 20210717
  Serious: Yes (Hospitalization)
  Sender: FDA-Public Use
  Company Number: None

PATIENT
  Age: 63 Year
  Sex: Female

DRUGS (22)
  1. MULTI?VIT [Concomitant]
     Active Substance: VITAMINS
  2. ALPRAZOLAM. [Concomitant]
     Active Substance: ALPRAZOLAM
  3. AITHROMYCIN [Concomitant]
  4. BENZONATATE. [Concomitant]
     Active Substance: BENZONATATE
  5. DEXAMETHASON [Concomitant]
     Active Substance: DEXAMETHASONE
  6. SYMBICORT [Concomitant]
     Active Substance: BUDESONIDE\FORMOTEROL FUMARATE DIHYDRATE
  7. HUMIRA [Suspect]
     Active Substance: ADALIMUMAB
     Indication: RHEUMATOID ARTHRITIS
     Route: 058
     Dates: start: 20190628
  8. ALBUTEROL HFA [Concomitant]
     Active Substance: ALBUTEROL SULFATE
  9. BUDESONIDE. [Concomitant]
     Active Substance: BUDESONIDE
  10. LISINOPRIL AND HYDROCHLOROTHIAZIDE [Concomitant]
     Active Substance: HYDROCHLOROTHIAZIDE\LISINOPRIL
  11. OMEGA?3 ACIDS [Concomitant]
     Active Substance: OMEGA-3 FATTY ACIDS
  12. FUROSEMIDE. [Concomitant]
     Active Substance: FUROSEMIDE
  13. METHYLPRED [Concomitant]
     Active Substance: METHYLPREDNISOLONE
  14. PANTROPRAZOLE [Concomitant]
  15. DULLOXETINE [Concomitant]
  16. HYDROCO/APAP [Concomitant]
     Active Substance: ACETAMINOPHEN\HYDROCODONE
  17. COLCHICINE. [Concomitant]
     Active Substance: COLCHICINE
  18. LISINOPRIL. [Concomitant]
     Active Substance: LISINOPRIL
  19. METOPROL TAR [Concomitant]
  20. NORCO [Concomitant]
     Active Substance: ACETAMINOPHEN\HYDROCODONE BITARTRATE
  21. PREDNISONE. [Concomitant]
     Active Substance: PREDNISONE
  22. VITAMIN D [Concomitant]
     Active Substance: VITAMIN D NOS

REACTIONS (4)
  - COVID-19 [None]
  - Condition aggravated [None]
  - Pain [None]
  - Joint swelling [None]

NARRATIVE: CASE EVENT DATE: 20210226
